FAERS Safety Report 15900419 (Version 1)
Quarter: 2019Q1

REPORT INFORMATION
  Report Type: Report from Study
  Country: US (occurrence: US)
  Receive Date: 20190201
  Receipt Date: 20190201
  Transmission Date: 20190417
  Serious: Yes (Death)
  Sender: FDA-Public Use
  Company Number: US-PFIZER INC-2019043308

PATIENT
  Age: 55 Year
  Sex: Male

DRUGS (1)
  1. GABAPENTIN. [Suspect]
     Active Substance: GABAPENTIN
     Dosage: 41400 MG (A BOTTLE OF 600MG GABAPENTIN TABLETS FILLED 1 DAY PRIOR WITH 69 MISSING PILLS)
     Route: 048

REACTIONS (4)
  - Respiratory arrest [Fatal]
  - Cardiac arrest [Fatal]
  - Brain death [Fatal]
  - Overdose [Fatal]

NARRATIVE: CASE EVENT DATE: 2014
